FAERS Safety Report 8317914 (Version 21)
Quarter: 2015Q2

REPORT INFORMATION
  Report Type: Report from Study
  Country: DE (occurrence: DE)
  Receive Date: 20120102
  Receipt Date: 20150522
  Transmission Date: 20150821
  Serious: Yes (Life-Threatening, Hospitalization)
  Sender: FDA-Public Use
  Company Number: DE-ROCHE-1018683

PATIENT
  Age: 76 Year
  Sex: Female
  Weight: 74.4 kg

DRUGS (28)
  1. FALITHROM [Concomitant]
     Active Substance: PHENPROCOUMON
     Route: 065
     Dates: start: 201010
  2. ZOLPIDEM [Concomitant]
     Active Substance: ZOLPIDEM\ZOLPIDEM TARTRATE
     Route: 065
     Dates: start: 201010
  3. ACTRAPHANE HM 30/70 [Concomitant]
     Dosage: 8/ULU/ML
     Route: 065
     Dates: start: 201010, end: 20111223
  4. BISOPROLOL [Concomitant]
     Active Substance: BISOPROLOL
     Route: 065
     Dates: start: 201112
  5. COVERSUM [Concomitant]
     Active Substance: PERINDOPRIL
     Route: 065
     Dates: start: 201010
  6. RAMIPRIL. [Concomitant]
     Active Substance: RAMIPRIL
     Route: 065
     Dates: start: 20111202
  7. TOREM [Concomitant]
     Active Substance: TORSEMIDE
     Route: 065
     Dates: start: 201010, end: 20111223
  8. LEVEMIR [Concomitant]
     Active Substance: INSULIN DETEMIR
     Dosage: 12/UNIT
     Route: 065
     Dates: start: 201012
  9. VEMURAFENIB [Suspect]
     Active Substance: VEMURAFENIB
     Dosage: REDUCED DOSE TO 50 PERCENT; DATE OF LAST DOSE PRIOR TO SAE: 24/DEC/2011
     Route: 048
     Dates: start: 20111222, end: 20111224
  10. AQUAPHOR [Concomitant]
     Active Substance: PETROLATUM
     Route: 065
     Dates: start: 201010
  11. PANTOZOL [Concomitant]
     Active Substance: PANTOPRAZOLE SODIUM
     Route: 065
     Dates: start: 201112
  12. SPIRONOLACTON [Concomitant]
     Active Substance: SPIRONOLACTONE
     Route: 065
     Dates: start: 201010, end: 20111223
  13. CONCOR [Concomitant]
     Active Substance: BISOPROLOL FUMARATE
     Route: 065
     Dates: start: 20111223
  14. INEGY [Concomitant]
     Active Substance: EZETIMIBE\SIMVASTATIN
     Dosage: 10/20 MG
     Route: 065
     Dates: start: 20101031
  15. ASPIRIN. [Concomitant]
     Active Substance: ASPIRIN
     Route: 065
     Dates: start: 201010
  16. BISOPROLOL [Concomitant]
     Active Substance: BISOPROLOL
     Route: 065
     Dates: start: 201010, end: 20111223
  17. LEVEMIR [Concomitant]
     Active Substance: INSULIN DETEMIR
     Route: 065
     Dates: start: 201112
  18. PENTALONG [Concomitant]
     Active Substance: PENTAERYTHRITOL TETRANITRATE
     Route: 065
     Dates: start: 201010
  19. VEMURAFENIB [Suspect]
     Active Substance: VEMURAFENIB
     Indication: METASTATIC MALIGNANT MELANOMA
     Dosage: DATE OF LAST DOSE PRIOR TO SAE: 30/NOV/2011, 12/DEC/2011.
     Route: 048
     Dates: start: 20111122, end: 20111212
  20. ACTRAPHANE HM 30/70 [Concomitant]
     Dosage: 10/ULU/ML
     Route: 065
     Dates: start: 201010
  21. TOREM [Concomitant]
     Active Substance: TORSEMIDE
     Route: 065
     Dates: start: 20111223
  22. SPIRONOLACTON [Concomitant]
     Active Substance: SPIRONOLACTONE
     Route: 065
     Dates: start: 20111223
  23. ACTRAPHANE [Concomitant]
     Active Substance: INSULIN HUMAN
     Dosage: 8 IU/ML, ACTRAPID30/70
     Route: 065
     Dates: start: 201010, end: 20111223
  24. MARCUMAR [Concomitant]
     Active Substance: PHENPROCOUMON
     Route: 065
     Dates: start: 201010
  25. CONCOR [Concomitant]
     Active Substance: BISOPROLOL FUMARATE
     Route: 065
     Dates: start: 201010, end: 20111223
  26. INEGY [Concomitant]
     Active Substance: EZETIMIBE\SIMVASTATIN
     Dosage: INEGY 10/40 MG
     Route: 065
     Dates: start: 201010
  27. PENTALONG [Concomitant]
     Active Substance: PENTAERYTHRITOL TETRANITRATE
     Route: 065
     Dates: start: 201010
  28. DIGITOXIN [Concomitant]
     Active Substance: DIGITOXIN
     Route: 065
     Dates: start: 201010

REACTIONS (2)
  - General physical health deterioration [Recovered/Resolved]
  - Pericardial haemorrhage [Recovering/Resolving]

NARRATIVE: CASE EVENT DATE: 20111130
